APPROVED DRUG PRODUCT: MARAVIROC
Active Ingredient: MARAVIROC
Strength: 150MG
Dosage Form/Route: TABLET;ORAL
Application: A203347 | Product #001 | TE Code: AB
Applicant: HETERO LABS LTD UNIT III
Approved: Feb 7, 2022 | RLD: No | RS: No | Type: RX